FAERS Safety Report 11184968 (Version 1)
Quarter: 2015Q2

REPORT INFORMATION
  Report Type: Spontaneous
  Country: US (occurrence: US)
  Receive Date: 20150612
  Receipt Date: 20150612
  Transmission Date: 20150821
  Serious: No
  Sender: FDA-Public Use
  Company Number: US-DSJP-DSU-2014-101198

PATIENT
  Sex: Female

DRUGS (2)
  1. BENICAR [Suspect]
     Active Substance: OLMESARTAN MEDOXOMIL
     Indication: SARCOIDOSIS
     Dosage: 40 MG, QID
     Route: 048
     Dates: start: 2011, end: 201402
  2. BENICAR [Suspect]
     Active Substance: OLMESARTAN MEDOXOMIL
     Indication: HYPERTENSION

REACTIONS (7)
  - Vision blurred [Recovering/Resolving]
  - Sinusitis [Not Recovered/Not Resolved]
  - Ocular hyperaemia [Recovering/Resolving]
  - Drug administration error [Recovered/Resolved]
  - Off label use [Recovered/Resolved]
  - Malaise [Recovering/Resolving]
  - Headache [Recovered/Resolved]

NARRATIVE: CASE EVENT DATE: 2011
